FAERS Safety Report 21170223 (Version 2)
Quarter: 2023Q1

REPORT INFORMATION
  Report Type: Spontaneous
  Country: US (occurrence: US)
  Receive Date: 20220804
  Receipt Date: 20230215
  Transmission Date: 20230418
  Serious: No
  Sender: FDA-Public Use
  Company Number: US-ALLERGAN-2225058US

PATIENT
  Sex: Female

DRUGS (31)
  1. BOTOX [Suspect]
     Active Substance: ONABOTULINUMTOXINA
     Indication: Tremor
     Dosage: UNK, SINGLE
  2. OCREVUS [Concomitant]
     Active Substance: OCRELIZUMAB
  3. CLONAZEPAM [Concomitant]
     Active Substance: CLONAZEPAM
  4. ADDERALL [Concomitant]
     Active Substance: AMPHETAMINE ASPARTATE\AMPHETAMINE SULFATE\DEXTROAMPHETAMINE SACCHARATE\DEXTROAMPHETAMINE SULFATE
  5. PRIMIDONE [Concomitant]
     Active Substance: PRIMIDONE
  6. BACLOFEN [Concomitant]
     Active Substance: BACLOFEN
  7. VENLAFAXINE [Concomitant]
     Active Substance: VENLAFAXINE HYDROCHLORIDE
  8. LORAZEPAM [Concomitant]
     Active Substance: LORAZEPAM
  9. VITAMIN D3 [Concomitant]
     Active Substance: CHOLECALCIFEROL
  10. VITAMIN B12 [Concomitant]
     Active Substance: CYANOCOBALAMIN
  11. VITAMIN C [Concomitant]
     Active Substance: ASCORBIC ACID
  12. GABAPENTIN [Concomitant]
     Active Substance: GABAPENTIN
  13. LYRICA [Concomitant]
     Active Substance: PREGABALIN
  14. XIIDRA [Concomitant]
     Active Substance: LIFITEGRAST
  15. OMEPRAZOLE [Concomitant]
     Active Substance: OMEPRAZOLE
  16. NAPROXEN [Concomitant]
     Active Substance: NAPROXEN
  17. TAMSULOSIN HYDROCHLORIDE [Concomitant]
     Active Substance: TAMSULOSIN HYDROCHLORIDE
  18. ASCORBIC ACID [Concomitant]
     Active Substance: ASCORBIC ACID
  19. DALFAMPRIDINE [Concomitant]
     Active Substance: DALFAMPRIDINE
  20. RESTASIS [Concomitant]
     Active Substance: CYCLOSPORINE
  21. WELLBUTRIN [Concomitant]
     Active Substance: BUPROPION HYDROCHLORIDE
  22. TYLENOL [Concomitant]
     Active Substance: ACETAMINOPHEN
  23. MEMANTINE [Concomitant]
     Active Substance: MEMANTINE
  24. AZO [Concomitant]
     Active Substance: PHENAZOPYRIDINE HYDROCHLORIDE
  25. OMEGA 3 COMPLETE [Concomitant]
  26. ZYRTEC [Concomitant]
     Active Substance: CETIRIZINE HYDROCHLORIDE
  27. CANNABIS SATIVA SEED OIL\HERBALS [Concomitant]
     Active Substance: CANNABIS SATIVA SEED OIL\HERBALS
  28. MARIJUANA VAPOR [Concomitant]
  29. KRILL OIL [Concomitant]
     Active Substance: DIETARY SUPPLEMENT\KRILL OIL
  30. Tumeric with Cumin Supplement [Concomitant]
  31. CRANBERRY [Concomitant]
     Active Substance: CRANBERRY

REACTIONS (2)
  - Muscular weakness [Unknown]
  - Drug ineffective [Unknown]
